FAERS Safety Report 7529965-6 (Version None)
Quarter: 2011Q2

REPORT INFORMATION
  Report Type: 
  Country: None (occurrence: None)
  Receive Date: 20110607
  Receipt Date: 20110531
  Transmission Date: 20111010
  Serious: Yes (Hospitalization, Disabling)
  Sender: FDA-Public Use
  Company Number: AU-MERCK-1105USA04084

PATIENT
  Sex: Female

DRUGS (1)
  1. FOSAMAX [Suspect]
     Route: 048
     Dates: start: 19990101, end: 20110101

REACTIONS (3)
  - FEMUR FRACTURE [None]
  - MOBILITY DECREASED [None]
  - TOOTH DISORDER [None]
